FAERS Safety Report 5977015-5 (Version None)
Quarter: 2008Q4

REPORT INFORMATION
  Report Type: 
  Country: None (occurrence: None)
  Receive Date: 20081129
  Receipt Date: 20081117
  Transmission Date: 20090506
  Serious: Yes (Hospitalization)
  Sender: FDA-Public Use
  Company Number: 2008SP002636

PATIENT
  Age: 54 Year
  Sex: Female

DRUGS (24)
  1. XOPENEX [Suspect]
     Indication: CHRONIC OBSTRUCTIVE PULMONARY DISEASE
     Dosage: 1.25 MG/3ML; BID; INHALATION
     Route: 055
     Dates: start: 20070813, end: 20070101
  2. XOPENEX [Suspect]
     Indication: CHRONIC OBSTRUCTIVE PULMONARY DISEASE
     Dosage: 1.25 MG/3ML; BID; INHALATION
     Route: 055
     Dates: start: 20080101, end: 20080501
  3. XOPENEX [Suspect]
     Indication: CHRONIC OBSTRUCTIVE PULMONARY DISEASE
     Dosage: 1.25 MG/3ML; BID; INHALATION
     Route: 055
     Dates: start: 20080701
  4. IPRATROPIUM BROMIDE [Concomitant]
  5. LIPITOR [Concomitant]
  6. ALLEGRA [Concomitant]
  7. ELAVIL [Concomitant]
  8. KLONOPIN [Concomitant]
  9. LEXAPRO [Concomitant]
  10. PULMICORT-100 [Concomitant]
  11. MUCINEX [Concomitant]
  12. AMARYL [Concomitant]
  13. NASONEX [Concomitant]
  14. TRENTAL [Concomitant]
  15. NEURONTIN [Concomitant]
  16. VITAMINS [Concomitant]
  17. LANTUS [Concomitant]
  18. NASACORT [Concomitant]
  19. ALBUTEROL [Concomitant]
  20. ZEBETA [Concomitant]
  21. LASIX [Concomitant]
  22. OMEPRAZOLE [Concomitant]
  23. ZOCOR [Concomitant]
  24. JANUVIA [Concomitant]

REACTIONS (6)
  - BLOOD GLUCOSE INCREASED [None]
  - CHRONIC OBSTRUCTIVE PULMONARY DISEASE [None]
  - CONDITION AGGRAVATED [None]
  - EXPIRED DRUG ADMINISTERED [None]
  - LOBAR PNEUMONIA [None]
  - NERVOUSNESS [None]
